FAERS Safety Report 20672203 (Version 5)
Quarter: 2022Q4

REPORT INFORMATION
  Report Type: Spontaneous
  Country: US (occurrence: US)
  Receive Date: 20220405
  Receipt Date: 20221206
  Transmission Date: 20230112
  Serious: Yes (Death, Other)
  Sender: FDA-Public Use
  Company Number: US-Blueprint Medicines Corporation-SP-US-2022-000890

PATIENT
  Age: 75 Year
  Sex: Male
  Weight: 76.272 kg

DRUGS (2)
  1. AYVAKIT [Suspect]
     Active Substance: AVAPRITINIB
     Indication: Systemic mastocytosis
     Route: 048
     Dates: start: 20220310
  2. AYVAKIT [Suspect]
     Active Substance: AVAPRITINIB
     Route: 048
     Dates: start: 20220310, end: 20221116

REACTIONS (19)
  - Death [Fatal]
  - Hepatic cirrhosis [Not Recovered/Not Resolved]
  - Abdominal distension [Recovered/Resolved]
  - Restlessness [Unknown]
  - Musculoskeletal discomfort [Unknown]
  - Feeling cold [Unknown]
  - Muscular weakness [Not Recovered/Not Resolved]
  - Inflammation [Recovering/Resolving]
  - Peripheral swelling [Not Recovered/Not Resolved]
  - Asthenia [Recovering/Resolving]
  - Diarrhoea [Recovered/Resolved]
  - Somnolence [Unknown]
  - Anaemia [Recovering/Resolving]
  - Splenomegaly [Not Recovered/Not Resolved]
  - Tryptase increased [Recovering/Resolving]
  - White blood cell count increased [Recovering/Resolving]
  - Increased appetite [Recovered/Resolved]
  - Cyst [Not Recovered/Not Resolved]
  - Erythema [Not Recovered/Not Resolved]

NARRATIVE: CASE EVENT DATE: 20220314
